FAERS Safety Report 11767091 (Version 1)
Quarter: 2015Q4

REPORT INFORMATION
  Report Type: Spontaneous
  Country: US (occurrence: None)
  Receive Date: 20151120
  Receipt Date: 20151120
  Transmission Date: 20160304
  Serious: Yes (Hospitalization)
  Sender: FDA-Public Use
  Company Number: None

PATIENT
  Age: 88 Year
  Sex: Male
  Weight: 49.9 kg

DRUGS (11)
  1. COUMADIN [Concomitant]
     Active Substance: WARFARIN SODIUM
  2. CALCITRIOL. [Concomitant]
     Active Substance: CALCITRIOL
  3. RED RICE YEAST [Concomitant]
     Active Substance: DIETARY SUPPLEMENT
  4. L-TYROSINE [Concomitant]
  5. LOSARTAN. [Concomitant]
     Active Substance: LOSARTAN
  6. COENZYME Q10 [Concomitant]
     Active Substance: UBIDECARENONE
  7. EYLEA [Suspect]
     Active Substance: AFLIBERCEPT
     Indication: NEOVASCULAR AGE-RELATED MACULAR DEGENERATION
     Dates: start: 20150925, end: 20151119
  8. FUROSEMIDE. [Concomitant]
     Active Substance: FUROSEMIDE
  9. EMERGEN-C [Concomitant]
     Active Substance: VITAMINS
  10. TRAVATAN-Z [Concomitant]
  11. EYLEA [Concomitant]
     Active Substance: AFLIBERCEPT

REACTIONS (5)
  - Dyspnoea [None]
  - Haemoglobin decreased [None]
  - Blood count abnormal [None]
  - Angiopathy [None]
  - Palpitations [None]

NARRATIVE: CASE EVENT DATE: 20151028
